FAERS Safety Report 5444024-4 (Version None)
Quarter: 2007Q3

REPORT INFORMATION
  Report Type: 
  Country: None (occurrence: None)
  Receive Date: 20070905
  Receipt Date: 20070821
  Transmission Date: 20080115
  Serious: Yes (Death)
  Sender: FDA-Public Use
  Company Number: US-GENENTECH-247038

PATIENT
  Sex: Male
  Weight: 122.9 kg

DRUGS (8)
  1. BEVACIZUMAB [Suspect]
     Indication: BILE DUCT CANCER
     Dosage: 5 MG/KG, Q2W
     Route: 042
     Dates: start: 20070409
  2. CAPECITABINE [Suspect]
     Indication: BILE DUCT CANCER
     Dosage: 925 MG/M2, BID
     Route: 048
     Dates: start: 20070409
  3. OXALIPLATIN [Suspect]
     Indication: BILE DUCT CANCER
     Dosage: 50 MG/M2, 1/WEEK
     Route: 042
     Dates: start: 20070409
  4. ALLEGRA [Concomitant]
     Indication: DRUG USE FOR UNKNOWN INDICATION
     Dates: start: 20070412, end: 20070806
  5. ATIVAN [Concomitant]
     Indication: DRUG USE FOR UNKNOWN INDICATION
     Dates: start: 20070409, end: 20070806
  6. WELLBUTRIN [Concomitant]
     Indication: DRUG USE FOR UNKNOWN INDICATION
     Dates: start: 20070507, end: 20070806
  7. MOTRIN [Concomitant]
     Indication: DRUG USE FOR UNKNOWN INDICATION
     Dates: start: 20070613, end: 20070806
  8. LOVENOX [Concomitant]
     Indication: DRUG USE FOR UNKNOWN INDICATION
     Dates: start: 20070406, end: 20070806

REACTIONS (2)
  - FAILURE TO THRIVE [None]
  - HEPATIC FAILURE [None]
